FAERS Safety Report 19068989 (Version 1)
Quarter: 2021Q1

REPORT INFORMATION
  Report Type: Spontaneous
  Country: US (occurrence: US)
  Receive Date: 20210329
  Receipt Date: 20210329
  Transmission Date: 20210420
  Serious: No
  Sender: FDA-Public Use
  Company Number: None

PATIENT
  Age: 65 Year
  Sex: Female

DRUGS (1)
  1. AMBRISENTAN [Suspect]
     Active Substance: AMBRISENTAN
     Indication: PULMONARY HYPERTENSION
     Route: 048

REACTIONS (5)
  - Fluid retention [None]
  - Feeling abnormal [None]
  - Feeling drunk [None]
  - Diarrhoea [None]
  - Swelling [None]

NARRATIVE: CASE EVENT DATE: 20210329
